FAERS Safety Report 15434897 (Version 1)
Quarter: 2018Q3

REPORT INFORMATION
  Report Type: Spontaneous
  Country: US (occurrence: US)
  Receive Date: 20180923
  Receipt Date: 20180923
  Transmission Date: 20181010
  Serious: No
  Sender: FDA-Public Use
  Company Number: None

PATIENT
  Age: 56 Year
  Sex: Female
  Weight: 78.75 kg

DRUGS (9)
  1. VALERIAN [Concomitant]
     Active Substance: VALERIAN
  2. FISH OIL [Concomitant]
     Active Substance: FISH OIL
  3. MAGNESIUM [Concomitant]
     Active Substance: MAGNESIUM
  4. ZOLPIDEM TARTRATE. [Suspect]
     Active Substance: ZOLPIDEM TARTRATE
     Indication: INSOMNIA
     Dosage: ?          QUANTITY:1.5 TABLET(S);?
     Route: 048
     Dates: start: 20180904, end: 20180921
  5. MELATONIN [Concomitant]
     Active Substance: MELATONIN
  6. GABA [Concomitant]
     Active Substance: HOMEOPATHICS
  7. MULTIVITAMIN [Concomitant]
     Active Substance: VITAMINS
  8. ZOLPIDEM [Concomitant]
     Active Substance: ZOLPIDEM\ZOLPIDEM TARTRATE
  9. CHLORPENIRAMINE [Concomitant]

REACTIONS (2)
  - Drug ineffective [None]
  - Therapeutic response changed [None]

NARRATIVE: CASE EVENT DATE: 20180904
